FAERS Safety Report 14376071 (Version 1)
Quarter: 2018Q1

REPORT INFORMATION
  Report Type: Spontaneous
  Country: FR (occurrence: FR)
  Receive Date: 20180111
  Receipt Date: 20180111
  Transmission Date: 20180509
  Serious: Yes (Life-Threatening, Hospitalization, Other)
  Sender: FDA-Public Use
  Company Number: FR-TEVA-2018-FR-845619

PATIENT
  Age: 36 Year
  Sex: Male

DRUGS (6)
  1. THERALENE [Suspect]
     Active Substance: TRIMEPRAZINE
     Indication: PRODUCT USED FOR UNKNOWN INDICATION
     Dosage: UNK
     Route: 048
     Dates: start: 20160317, end: 20160409
  2. LOXAPAC [Suspect]
     Active Substance: LOXAPINE
     Indication: PRODUCT USED FOR UNKNOWN INDICATION
     Dosage: UNK
     Route: 048
     Dates: start: 20160317, end: 20160409
  3. VALIUM [Suspect]
     Active Substance: DIAZEPAM
     Indication: PSYCHOTIC DISORDER
     Dosage: UNK, TID
     Route: 048
     Dates: start: 20160317, end: 20160409
  4. RISPERDAL [Suspect]
     Active Substance: RISPERIDONE
     Indication: PSYCHOTIC DISORDER
     Dosage: 4 DOSAGE FORMS DAILY;
     Route: 048
     Dates: start: 20160317, end: 20160409
  5. RISPERIDONE. [Suspect]
     Active Substance: RISPERIDONE
     Indication: PSYCHOTIC DISORDER
     Dosage: 4 DOSAGE FORMS DAILY;
     Route: 048
     Dates: start: 20160317, end: 20160409
  6. ABILIFY [Suspect]
     Active Substance: ARIPIPRAZOLE
     Indication: PSYCHOTIC DISORDER
     Dosage: 15 MG, UNK
     Route: 048
     Dates: start: 20160317, end: 20160409

REACTIONS (8)
  - Depressed level of consciousness [Recovering/Resolving]
  - Dysphagia [Unknown]
  - Extrapyramidal disorder [Unknown]
  - Hyperhidrosis [Unknown]
  - Pneumonia aspiration [Recovering/Resolving]
  - Catatonia [Unknown]
  - Apathy [Unknown]
  - Off label use [Unknown]

NARRATIVE: CASE EVENT DATE: 20160409
